FAERS Safety Report 10468428 (Version 1)
Quarter: 2014Q3

REPORT INFORMATION
  Report Type: Spontaneous
  Country: US (occurrence: US)
  Receive Date: 20140922
  Receipt Date: 20140922
  Transmission Date: 20150326
  Serious: No
  Sender: FDA-Public Use
  Company Number: US-ALLERGAN-1318721US

PATIENT
  Sex: Female

DRUGS (1)
  1. LASTACAFT [Suspect]
     Active Substance: ALCAFTADINE
     Indication: HYPERSENSITIVITY
     Dosage: 2 GTT, QAM
     Route: 047
     Dates: start: 20131106, end: 20131124

REACTIONS (4)
  - Swollen tongue [Unknown]
  - Oral discomfort [Unknown]
  - Eye irritation [Unknown]
  - Eye pruritus [Unknown]
